FAERS Safety Report 20349351 (Version 2)
Quarter: 2022Q1

REPORT INFORMATION
  Report Type: Spontaneous
  Country: US (occurrence: US)
  Receive Date: 20220119
  Receipt Date: 20220316
  Transmission Date: 20220423
  Serious: No
  Sender: FDA-Public Use
  Company Number: US-GLENMARK PHARMACEUTICALS-2021GMK069191

PATIENT

DRUGS (2)
  1. TELMISARTAN [Suspect]
     Active Substance: TELMISARTAN
     Indication: Hypertension
     Dosage: 40 MILLIGRAM, QD (BLISTER PACK WHICH WORKING FOR BLOOD PRESSURE)
     Route: 048
     Dates: start: 20211111
  2. TELMISARTAN [Suspect]
     Active Substance: TELMISARTAN
     Dosage: 40 MILLIGRAM, QD (BOTTLE PACK WHICH NOT WORKING FOR BLOOD PRESSURE)
     Route: 048

REACTIONS (2)
  - Drug ineffective [Unknown]
  - Product packaging issue [Unknown]
